FAERS Safety Report 7052098-2 (Version None)
Quarter: 2010Q4

REPORT INFORMATION
  Report Type: 
  Country: None (occurrence: None)
  Receive Date: 20101019
  Receipt Date: 20101006
  Transmission Date: 20110411
  Serious: Yes (Other)
  Sender: FDA-Public Use
  Company Number: PHHY2010US58050

PATIENT
  Sex: Female

DRUGS (2)
  1. GENTEAL (NVO) [Suspect]
  2. CHEMOTHERAPEUTICS NOS [Concomitant]

REACTIONS (4)
  - EYE INFECTION [None]
  - EYE IRRITATION [None]
  - EYE PAIN [None]
  - OCULAR HYPERAEMIA [None]
